FAERS Safety Report 8265007-5 (Version None)
Quarter: 2012Q2

REPORT INFORMATION
  Report Type: 
  Country: None (occurrence: None)
  Receive Date: 20120403
  Receipt Date: 20120324
  Transmission Date: 20120825
  Serious: Yes (Life-Threatening)
  Sender: FDA-Public Use
  Company Number: 2012076664

PATIENT
  Age: 83 Year
  Sex: Male

DRUGS (10)
  1. GLAZIDIM (CEFTAZIDIME) [Concomitant]
  2. ATEM (IPRATROPIUM BROMIDE) [Concomitant]
  3. URBASON SOLUBILE (METHYLPREDNISOLONE SODIUM SUCCINATE) [Concomitant]
  4. LUVION (CANRENOIC ACID) [Concomitant]
  5. PANTORC (PANTOPRAZOLE SODIUM) [Concomitant]
  6. ASPIRIN [Concomitant]
  7. CLENIL (BECLOMETASONE DIPROPIONATE) [Concomitant]
  8. FRAGMIN [Suspect]
     Dosage: 5 KIU, DAILY, SUBCUTANEOUS
     Route: 058
     Dates: start: 20120319, end: 20120319
  9. LASIX [Concomitant]
  10. BRONCOVALEAS (SALBUTAMOL) [Concomitant]

REACTIONS (3)
  - PULMONARY EMBOLISM [None]
  - DYSPNOEA [None]
  - HYPOXIA [None]
